FAERS Safety Report 12438739 (Version 1)
Quarter: 2016Q2

REPORT INFORMATION
  Report Type: Spontaneous
  Country: US (occurrence: US)
  Receive Date: 20160606
  Receipt Date: 20160606
  Transmission Date: 20160815
  Serious: No
  Sender: FDA-Public Use
  Company Number: US-MDT-ADR-2016-01005

PATIENT
  Age: 56 Year
  Sex: Female

DRUGS (4)
  1. MORPHINE [Suspect]
     Active Substance: MORPHINE
     Route: 037
  2. TRAMADOL. [Suspect]
     Active Substance: TRAMADOL
     Route: 048
  3. BACLOFEN. [Suspect]
     Active Substance: BACLOFEN
     Route: 037
  4. BUPIVACAINE. [Suspect]
     Active Substance: BUPIVACAINE
     Route: 037

REACTIONS (4)
  - Infusion site inflammation [Unknown]
  - Pain [Unknown]
  - Musculoskeletal stiffness [Unknown]
  - Gait disturbance [Unknown]

NARRATIVE: CASE EVENT DATE: 201602
